FAERS Safety Report 9536205 (Version 7)
Quarter: 2014Q2

REPORT INFORMATION
  Report Type: Spontaneous
  Country: US (occurrence: US)
  Receive Date: 20130919
  Receipt Date: 20140408
  Transmission Date: 20141212
  Serious: No
  Sender: FDA-Public Use
  Company Number: US-PFIZER INC-2013267132

PATIENT
  Age: 79 Year
  Sex: Male

DRUGS (10)
  1. SUTENT [Suspect]
     Indication: GASTROINTESTINAL STROMAL TUMOUR
     Dosage: 50 MG, CYCLIC (DAILY FOR 28 DAYS ON AND 14 DAYS OFF)
     Route: 048
     Dates: start: 20130715
  2. LISINOPRIL [Concomitant]
     Indication: HYPERTENSION
     Dosage: 20 MG, 1X/DAY
     Dates: start: 20121113
  3. TERAZOSIN [Concomitant]
     Indication: HYPERTENSION
     Dosage: 5 MG, 1X/DAY
     Dates: start: 20121113
  4. ATENOLOL [Concomitant]
     Indication: HYPERTENSION
     Dosage: 25 MG, 1X/DAY
     Dates: start: 20121113
  5. SIMVASTATIN [Concomitant]
     Indication: BLOOD CHOLESTEROL INCREASED
     Dosage: 25 MG, 1X/DAY
     Dates: start: 20121113
  6. PROSCAR [Concomitant]
     Indication: ALOPECIA
     Dosage: 5 MG, 1X/DAY
     Dates: start: 20121113
  7. ZOLPIDEM [Concomitant]
     Indication: INSOMNIA
     Dosage: 5 MG, 1X/DAY
     Dates: start: 20130725
  8. METOPROLOL [Concomitant]
     Indication: HYPERTENSION
     Dosage: UNK
  9. HYDROCHLOROTHIAZIDE [Concomitant]
     Indication: HYPERTENSION
     Dosage: UNK
  10. HYDROCODONE [Concomitant]

REACTIONS (15)
  - Oral pain [Unknown]
  - Glossodynia [Not Recovered/Not Resolved]
  - Gingival pain [Unknown]
  - Eating disorder [Unknown]
  - Dry mouth [Unknown]
  - Stomatitis [Recovering/Resolving]
  - Hypertension [Not Recovered/Not Resolved]
  - Pain in extremity [Not Recovered/Not Resolved]
  - Diarrhoea [Recovering/Resolving]
  - Rash pruritic [Unknown]
  - Ear pain [Unknown]
  - Ear infection [Unknown]
  - Stomatitis [Unknown]
  - Glossitis [Unknown]
  - Dyspnoea [Unknown]
